FAERS Safety Report 5716300-9 (Version None)
Quarter: 2008Q2

REPORT INFORMATION
  Report Type: 
  Country: None (occurrence: None)
  Receive Date: 20080424
  Receipt Date: 20080424
  Transmission Date: 20081010
  Serious: Yes (Death)
  Sender: FDA-Public Use
  Company Number: D0056193A

PATIENT
  Sex: Male

DRUGS (2)
  1. ELONTRIL [Suspect]
     Route: 048
     Dates: start: 20080101
  2. ALCOHOL [Suspect]
     Route: 048

REACTIONS (2)
  - COMPLETED SUICIDE [None]
  - SUICIDE ATTEMPT [None]
